FAERS Safety Report 7291090-X (Version None)
Quarter: 2011Q1

REPORT INFORMATION
  Report Type: 
  Country: None (occurrence: None)
  Receive Date: 20110202
  Receipt Date: 20110118
  Transmission Date: 20110831
  Serious: Yes (Other)
  Sender: FDA-Public Use
  Company Number: JP-2011-10109

PATIENT
  Age: 80 Year
  Sex: Male

DRUGS (3)
  1. ASPIRIN [Concomitant]
  2. TAKEPRON (LANSOPRAZOLE) [Concomitant]
  3. PLETAL [Suspect]
     Dosage: ORAL
     Route: 048
     Dates: start: 20100701, end: 20110107

REACTIONS (1)
  - HAEMARTHROSIS [None]
